FAERS Safety Report 5611287-1 (Version None)
Quarter: 2008Q1

REPORT INFORMATION
  Report Type: 
  Country: None (occurrence: None)
  Receive Date: 20080128
  Receipt Date: 20080111
  Transmission Date: 20080703
  Serious: Yes (Other)
  Sender: FDA-Public Use
  Company Number: 20080007 /

PATIENT
  Age: 39 Year
  Sex: Female

DRUGS (1)
  1. VENOFER [Suspect]
     Indication: IRON DEFICIENCY ANAEMIA
     Dosage: 100 MG TWICE A WEEK

REACTIONS (4)
  - IRON DEFICIENCY [None]
  - MARROW HYPERPLASIA [None]
  - MENORRHAGIA [None]
  - PANCYTOPENIA [None]
